FAERS Safety Report 7778345-7 (Version None)
Quarter: 2011Q3

REPORT INFORMATION
  Report Type: 
  Country: None (occurrence: None)
  Receive Date: 20110926
  Receipt Date: 20110912
  Transmission Date: 20111222
  Serious: Yes (Hospitalization)
  Sender: FDA-Public Use
  Company Number: US-BAYER-2011-068402

PATIENT
  Age: 52 Year
  Sex: Female
  Weight: 65 kg

DRUGS (7)
  1. MIRALAX [Concomitant]
  2. YAZ [Suspect]
     Indication: ORAL CONTRACEPTION
     Dosage: UNK
     Dates: start: 20090501, end: 20090901
  3. MILK THISTLE [Concomitant]
     Dosage: UNK
     Dates: start: 20050101
  4. LIPITOR [Concomitant]
     Dosage: UNK
     Dates: start: 20040101, end: 20100101
  5. MULTI-PURPOSE SUPPLEMENT [Concomitant]
     Dosage: UNK
     Dates: start: 20060101, end: 20100101
  6. AMITIZA [Concomitant]
     Dosage: 8 UNK, UNK
     Dates: start: 20090628
  7. ASTELIN [Concomitant]
     Dosage: UNK
     Route: 045
     Dates: start: 20090829

REACTIONS (3)
  - INJURY [None]
  - DEEP VEIN THROMBOSIS [None]
  - THROMBOSIS [None]
